FAERS Safety Report 18767921 (Version 2)
Quarter: 2021Q1

REPORT INFORMATION
  Report Type: Spontaneous
  Country: FR (occurrence: FR)
  Receive Date: 20210121
  Receipt Date: 20210127
  Transmission Date: 20210419
  Serious: Yes (Death, Hospitalization)
  Sender: FDA-Public Use
  Company Number: FR-PFIZER INC-2021045631

PATIENT
  Age: 87 Year
  Sex: Female
  Weight: 37 kg

DRUGS (18)
  1. ACIDE FOLIQUE [Concomitant]
     Active Substance: FOLIC ACID
     Dosage: 5 MILLIGRAM
     Route: 048
  2. XYLENE [Concomitant]
     Active Substance: XYLENE
     Dosage: 10 PERCENT, QD
     Route: 001
     Dates: start: 20200701, end: 20200711
  3. CLOZAPINE. [Concomitant]
     Active Substance: CLOZAPINE
     Dosage: 25 MILLIGRAM
     Route: 048
     Dates: start: 2012
  4. PANTOPRAZOLE [Suspect]
     Active Substance: PANTOPRAZOLE
     Dosage: 20 MILLIGRAM, QD
     Route: 048
     Dates: start: 2015, end: 20200917
  5. LACTULOSE. [Concomitant]
     Active Substance: LACTULOSE
     Dosage: UNK UNK, QD
     Route: 048
     Dates: start: 20190408
  6. LATANOPROST. [Concomitant]
     Active Substance: LATANOPROST
     Dosage: 0.01 PERCENT, QD
     Route: 047
     Dates: start: 20190408
  7. TIMOLOL MALEATE. [Concomitant]
     Active Substance: TIMOLOL MALEATE
     Dosage: 0.5 PERCENT, QD
     Route: 047
     Dates: start: 20190408
  8. SINEMET [Concomitant]
     Active Substance: CARBIDOPA\LEVODOPA
     Dosage: UNK, 1X/DAY
     Route: 048
     Dates: start: 20190408
  9. TRAMADOL HYDROCHLORIDE. [Concomitant]
     Active Substance: TRAMADOL HYDROCHLORIDE
     Dosage: 24 GTT DROPS, QD
     Route: 048
     Dates: start: 20190408
  10. POTASSIUM TARTRATE [Concomitant]
     Active Substance: POTASSIUM TARTRATE
     Dosage: UNK UNK, 1X/DAY
     Route: 054
     Dates: start: 20190408
  11. TARDYFERON [Concomitant]
     Active Substance: FERROUS SULFATE
     Dosage: 80 MILLIGRAM
     Route: 048
  12. AUGMENTIN [Concomitant]
     Active Substance: AMOXICILLIN\CLAVULANATE POTASSIUM
     Dosage: 3000 MILLIGRAM
     Route: 048
     Dates: start: 20201005, end: 20201016
  13. PHOSPHATES [SODIUM PHOSPHATE] [Concomitant]
     Active Substance: SODIUM PHOSPHATE
     Dosage: UNK, 1X/DAY
     Route: 048
     Dates: start: 20190408
  14. PARACETAMOL [Concomitant]
     Active Substance: ACETAMINOPHEN
     Dosage: UNK, 1X/DAY
     Route: 048
     Dates: start: 20190408
  15. AUGMENTIN [Concomitant]
     Active Substance: AMOXICILLIN\CLAVULANATE POTASSIUM
     Dosage: 1500 MILLIGRAM, QD
     Route: 042
     Dates: start: 20200825, end: 20200905
  16. AUGMENTIN [Concomitant]
     Active Substance: AMOXICILLIN\CLAVULANATE POTASSIUM
     Dosage: 3000 MILLIGRAM, QD
     Route: 048
     Dates: start: 20200916, end: 20200925
  17. COLECALCIFEROL [Concomitant]
     Active Substance: CHOLECALCIFEROL
     Dosage: UNK UNK, 2/MONTH
     Route: 048
     Dates: start: 20200506
  18. OXAZEPAM. [Concomitant]
     Active Substance: OXAZEPAM
     Dosage: 10 MILLIGRAM, QD
     Route: 048
     Dates: start: 20190820

REACTIONS (3)
  - Death [Fatal]
  - Condition aggravated [Recovering/Resolving]
  - Lung disorder [Recovering/Resolving]

NARRATIVE: CASE EVENT DATE: 2017
